APPROVED DRUG PRODUCT: ORPHENADRINE CITRATE
Active Ingredient: ORPHENADRINE CITRATE
Strength: 100MG
Dosage Form/Route: TABLET, EXTENDED RELEASE;ORAL
Application: A040327 | Product #001 | TE Code: AB
Applicant: SANDOZ INC
Approved: Feb 15, 2000 | RLD: No | RS: No | Type: RX